FAERS Safety Report 5858041-3 (Version None)
Quarter: 2008Q3

REPORT INFORMATION
  Report Type: 
  Country: None (occurrence: None)
  Receive Date: 20080822
  Receipt Date: 20080812
  Transmission Date: 20090109
  Serious: Yes (Hospitalization)
  Sender: FDA-Public Use
  Company Number: 2008BI011052

PATIENT
  Age: 42 Year
  Sex: Male
  Weight: 75 kg

DRUGS (3)
  1. AVONEX [Suspect]
     Indication: RELAPSING-REMITTING MULTIPLE SCLEROSIS
     Dosage: 30 UG; QW; IM
     Route: 030
     Dates: start: 20050601
  2. PREDNISOLONE [Concomitant]
  3. CORTICOSTEROID [Concomitant]

REACTIONS (5)
  - CALCULUS URINARY [None]
  - INFLUENZA LIKE ILLNESS [None]
  - NEUROGENIC BLADDER [None]
  - URETERIC STENOSIS [None]
  - VIRAL MYOSITIS [None]
